FAERS Safety Report 15653423 (Version 2)
Quarter: 2019Q1

REPORT INFORMATION
  Report Type: Other
  Country: DE (occurrence: DE)
  Receive Date: 20181124
  Receipt Date: 20190130
  Transmission Date: 20190417
  Serious: Yes (Other)
  Sender: FDA-Public Use
  Company Number: DE-ACCORD-092884

PATIENT
  Sex: Female
  Weight: 3.1 kg

DRUGS (8)
  1. ETOPOSIDE. [Suspect]
     Active Substance: ETOPOSIDE
     Indication: RHABDOID TUMOUR
     Dosage: DURING THIRD CYCLE: 66% FOURTH: 80
     Route: 065
  2. TANDEM DHA [Concomitant]
     Active Substance: ASCORBIC ACID\FERROUS FUMARATE\FOLIC ACID\IRON\OMEGA-3-ACID ETHYL ESTERS\PYRIDOXINE HYDROCHLORIDE
     Indication: PRODUCT USED FOR UNKNOWN INDICATION
     Route: 065
  3. CYCLOPHOSPHAMIDE/CYCLOPHOSPHAMIDE MONOHYDRATE [Suspect]
     Active Substance: CYCLOPHOSPHAMIDE
     Indication: RHABDOID TUMOUR
     Dosage: DURING FIRST AND SECOND CYCLE: 100%; FIFTH: 80%; SIXTH: 70%
     Route: 065
  4. VINCRISTINE [Suspect]
     Active Substance: VINCRISTINE
     Indication: RHABDOID TUMOUR
     Dosage: DURING FIRST AND SECOND CYCLE: 100%, FIFTH: 80%, SIXTH: 70%
     Route: 065
  5. IFOSFAMIDE. [Suspect]
     Active Substance: IFOSFAMIDE
     Indication: RHABDOID TUMOUR
     Dosage: DURING THIRD CYCLE: 66%, FOURTH: 80%.
     Route: 065
  6. METHOTREXATE. [Concomitant]
     Active Substance: METHOTREXATE
     Indication: PRODUCT USED FOR UNKNOWN INDICATION
     Route: 039
  7. CARBOPLATIN. [Suspect]
     Active Substance: CARBOPLATIN
     Indication: RHABDOID TUMOUR
     Dosage: DURING THIRD CYCLE: 66% FOURTH: 80
     Route: 065
  8. DOXORUBICIN [Suspect]
     Active Substance: DOXORUBICIN
     Indication: RHABDOID TUMOUR
     Dosage: DURING FIRST AND SECOND CYCLE: 100%, FIFTH: 80%, SIXTH: 70%
     Route: 042

REACTIONS (5)
  - Vomiting [Recovered/Resolved]
  - Off label use [Unknown]
  - Febrile neutropenia [Recovered/Resolved]
  - Neutropenia [Recovered/Resolved]
  - Pyrexia [Recovered/Resolved]
